FAERS Safety Report 5831813-7 (Version None)
Quarter: 2008Q3

REPORT INFORMATION
  Report Type: 
  Country: None (occurrence: None)
  Receive Date: 20080804
  Receipt Date: 20080725
  Transmission Date: 20090109
  Serious: Yes (Hospitalization)
  Sender: FDA-Public Use
  Company Number: DE-ELI_LILLY_AND_COMPANY-DE200806003402

PATIENT
  Age: 37 Year
  Sex: Male

DRUGS (18)
  1. ZYPREXA [Suspect]
     Dosage: 20 MG, DAILY (1/D)
     Route: 048
     Dates: start: 20071126, end: 20080108
  2. ZYPREXA [Suspect]
     Dosage: 17.5 MG, DAILY (1/D)
     Route: 048
     Dates: start: 20080109, end: 20080109
  3. ZYPREXA [Suspect]
     Dosage: 15 MG, DAILY (1/D)
     Route: 048
     Dates: start: 20080110, end: 20080111
  4. ZYPREXA [Suspect]
     Dosage: 10 MG, DAILY (1/D)
     Route: 048
     Dates: start: 20080112, end: 20080208
  5. ZYPREXA [Suspect]
     Dosage: 15 MG, DAILY (1/D)
     Route: 048
     Dates: start: 20080209, end: 20080209
  6. ZYPREXA [Suspect]
     Dosage: 20 MG, DAILY (1/D)
     Route: 048
     Dates: start: 20080210, end: 20080211
  7. ZYPREXA [Suspect]
     Dosage: 15 MG, DAILY (1/D)
     Route: 048
     Dates: start: 20080212, end: 20080212
  8. ZYPREXA [Suspect]
     Dosage: 10 MG, DAILY (1/D)
     Route: 048
     Dates: start: 20080213
  9. VALPROATE SODIUM [Concomitant]
     Dosage: 300 MG, DAILY (1/D)
     Route: 048
     Dates: start: 20080107, end: 20080107
  10. VALPROATE SODIUM [Concomitant]
     Dosage: 600 MG, DAILY (1/D)
     Route: 048
     Dates: start: 20080108, end: 20080108
  11. VALPROATE SODIUM [Concomitant]
     Dosage: 900 MG, DAILY (1/D)
     Route: 048
     Dates: start: 20080109, end: 20080109
  12. VALPROATE SODIUM [Concomitant]
     Dosage: 1200 MG, DAILY (1/D)
     Route: 048
     Dates: start: 20080110, end: 20080111
  13. VALPROATE SODIUM [Concomitant]
     Dosage: 1500 MG, DAILY (1/D)
     Route: 048
     Dates: start: 20080112, end: 20080125
  14. VALPROATE SODIUM [Concomitant]
     Dosage: 1200 MG, DAILY (1/D)
     Route: 048
     Dates: start: 20080126, end: 20080204
  15. VALPROATE SODIUM [Concomitant]
     Dosage: 1500 MG, DAILY (1/D)
     Route: 048
     Dates: start: 20080205, end: 20080207
  16. VALPROATE SODIUM [Concomitant]
     Dosage: 1200 MG, DAILY (1/D)
     Route: 048
     Dates: start: 20080208
  17. DIAZEPAM [Concomitant]
     Dosage: 4 MG, DAILY (1/D)
     Route: 048
     Dates: start: 20080205, end: 20080208
  18. DIAZEPAM [Concomitant]
     Dosage: 10 MG, DAILY (1/D)
     Route: 048
     Dates: start: 20080209

REACTIONS (11)
  - AMNESIA [None]
  - CONFUSIONAL STATE [None]
  - DELIRIUM [None]
  - DEPRESSION [None]
  - DISORIENTATION [None]
  - DISTURBANCE IN ATTENTION [None]
  - HOSPITALISATION [None]
  - MANIA [None]
  - RESTLESSNESS [None]
  - STUPOR [None]
  - TEARFULNESS [None]
